FAERS Safety Report 26111167 (Version 1)
Quarter: 2025Q4

REPORT INFORMATION
  Report Type: Report from Study
  Country: US (occurrence: US)
  Receive Date: 20251202
  Receipt Date: 20251202
  Transmission Date: 20260118
  Serious: Yes (Other)
  Sender: JOHNSON AND JOHNSON
  Company Number: US-JNJFOC-20250825079

PATIENT
  Age: 61 Year
  Sex: Female

DRUGS (3)
  1. IMAAVY [Suspect]
     Active Substance: NIPOCALIMAB-AAHU
     Indication: Myasthenia gravis
     Route: 041
     Dates: start: 20250815
  2. IMAAVY [Suspect]
     Active Substance: NIPOCALIMAB-AAHU
     Route: 041
     Dates: start: 20250815
  3. IMAAVY [Suspect]
     Active Substance: NIPOCALIMAB-AAHU
     Dosage: FREQUENCY TIME ALSO REPORTED AS 2 WEEKS
     Route: 041
     Dates: start: 20250829

REACTIONS (6)
  - Myasthenia gravis [Recovering/Resolving]
  - Nasopharyngitis [Unknown]
  - Tooth fracture [Unknown]
  - Therapeutic product effect decreased [Unknown]
  - Inappropriate schedule of product administration [Unknown]
  - Off label use [Unknown]

NARRATIVE: CASE EVENT DATE: 20250801
